FAERS Safety Report 12979600 (Version 3)
Quarter: 2016Q4

REPORT INFORMATION
  Report Type: Spontaneous
  Country: US (occurrence: US)
  Receive Date: 20161128
  Receipt Date: 20161215
  Transmission Date: 20170207
  Serious: Yes (Death, Other)
  Sender: FDA-Public Use
  Company Number: US-009507513-1611USA010386

PATIENT
  Age: 85 Year
  Sex: Male

DRUGS (2)
  1. FLOMAX [Concomitant]
     Active Substance: TAMSULOSIN HYDROCHLORIDE
     Dosage: UNK
  2. KEYTRUDA [Suspect]
     Active Substance: PEMBROLIZUMAB
     Indication: SQUAMOUS CELL CARCINOMA
     Dosage: UNK
     Route: 042
     Dates: start: 20160817, end: 20160907

REACTIONS (2)
  - Death [Fatal]
  - Head and neck cancer [Fatal]

NARRATIVE: CASE EVENT DATE: 2016
